FAERS Safety Report 22114957 (Version 1)
Quarter: 2023Q1

REPORT INFORMATION
  Report Type: Spontaneous
  Country: US (occurrence: US)
  Receive Date: 20230320
  Receipt Date: 20230320
  Transmission Date: 20230417
  Serious: Yes (Other)
  Sender: FDA-Public Use
  Company Number: US-AZURITY PHARMACEUTICALS, INC.-US-2023ARB000352

PATIENT
  Sex: Male

DRUGS (5)
  1. ZONISADE [Suspect]
     Active Substance: ZONISAMIDE
     Indication: Epilepsy
     Dosage: UNK
     Route: 048
  2. ZONISADE [Suspect]
     Active Substance: ZONISAMIDE
     Dosage: 40 MG (100MG/5ML), AT BEDTIME
     Route: 048
     Dates: start: 20230206, end: 20230207
  3. ZONISADE [Suspect]
     Active Substance: ZONISAMIDE
     Dosage: 60 MG (100MG/5ML), AT BEDTIME
     Route: 048
     Dates: start: 20230208, end: 20230214
  4. ZONISADE [Suspect]
     Active Substance: ZONISAMIDE
     Dosage: UNK
     Route: 048
     Dates: start: 20230215
  5. LEVETIRACETAM [Concomitant]
     Active Substance: LEVETIRACETAM
     Indication: Product used for unknown indication
     Dosage: 300 MG, BID

REACTIONS (4)
  - Seizure [Unknown]
  - Product dispensing error [Unknown]
  - Incorrect dose administered [Unknown]
  - Product use issue [Unknown]

NARRATIVE: CASE EVENT DATE: 20230101
